FAERS Safety Report 21240944 (Version 1)
Quarter: 2022Q3

REPORT INFORMATION
  Report Type: Spontaneous
  Country: US (occurrence: None)
  Receive Date: 20220822
  Receipt Date: 20220822
  Transmission Date: 20221027
  Serious: No
  Sender: FDA-Public Use
  Company Number: None

PATIENT
  Age: 60 Year
  Sex: Female
  Weight: 70.2 kg

DRUGS (1)
  1. SULFAMETHOXAZOLE\TRIMETHOPRIM [Suspect]
     Active Substance: SULFAMETHOXAZOLE\TRIMETHOPRIM
     Indication: Urinary tract infection
     Dosage: OTHER QUANTITY : 2 TABLET(S);?FREQUENCY : TWICE A DAY;?
     Route: 048
     Dates: start: 20220708, end: 20220708

REACTIONS (13)
  - Pulmonary hypertension [None]
  - Discomfort [None]
  - Peripheral swelling [None]
  - Peripheral swelling [None]
  - Erythema [None]
  - Visual impairment [None]
  - Vision blurred [None]
  - Hypoaesthesia oral [None]
  - Lip swelling [None]
  - Tinnitus [None]
  - Feeling hot [None]
  - Blindness [None]
  - Urticaria [None]

NARRATIVE: CASE EVENT DATE: 20220708
